FAERS Safety Report 6178250-6 (Version None)
Quarter: 2009Q2

REPORT INFORMATION
  Report Type: 
  Country: None (occurrence: None)
  Receive Date: 20090504
  Receipt Date: 20090427
  Transmission Date: 20091009
  Serious: Yes (Life-Threatening, Disabling)
  Sender: FDA-Public Use
  Company Number: A0780786A

PATIENT
  Age: 57 Year
  Sex: Female

DRUGS (9)
  1. VENTOLIN [Suspect]
     Indication: CHRONIC OBSTRUCTIVE PULMONARY DISEASE
     Dosage: 1PUFF AS REQUIRED
     Route: 055
     Dates: start: 20090201
  2. ADVAIR HFA [Suspect]
     Indication: CHRONIC OBSTRUCTIVE PULMONARY DISEASE
     Dosage: 1PUFF PER DAY
     Route: 055
  3. OXYGEN [Concomitant]
  4. ALBUTEROL [Concomitant]
  5. PERCOCET [Concomitant]
  6. MORPHINE [Concomitant]
  7. LASIX [Concomitant]
  8. XANAX [Concomitant]
  9. ZIAC [Concomitant]

REACTIONS (6)
  - DIZZINESS [None]
  - DRUG INEFFECTIVE [None]
  - DYSPNOEA [None]
  - INHALATION THERAPY [None]
  - MOBILITY DECREASED [None]
  - OXYGEN SUPPLEMENTATION [None]
